FAERS Safety Report 11295057 (Version 2)
Quarter: 2015Q3

REPORT INFORMATION
  Report Type: Spontaneous
  Country: US (occurrence: US)
  Receive Date: 20150723
  Receipt Date: 20150824
  Transmission Date: 20151125
  Serious: No
  Sender: FDA-Public Use
  Company Number: US-009507513-1507USA010320

PATIENT
  Age: 28 Year
  Sex: Female
  Weight: 84.35 kg

DRUGS (1)
  1. NEXPLANON [Suspect]
     Active Substance: ETONOGESTREL
     Indication: CONTRACEPTION
     Dosage: UNK
     Route: 059
     Dates: start: 20150521, end: 20150716

REACTIONS (2)
  - Menstruation irregular [Unknown]
  - Implant site pruritus [Recovered/Resolved]

NARRATIVE: CASE EVENT DATE: 2015
